FAERS Safety Report 10216422 (Version 2)
Quarter: 2014Q2

REPORT INFORMATION
  Report Type: Report from Study
  Country: US (occurrence: US)
  Receive Date: 20140604
  Receipt Date: 20140609
  Transmission Date: 20141212
  Serious: Yes (Other)
  Sender: FDA-Public Use
  Company Number: US-OTSUKA-US-2014-11132

PATIENT
  Sex: 0

DRUGS (2)
  1. BLINDED PLACEBO [Suspect]
     Indication: CARDIAC FAILURE
     Route: 065
  2. BLINDED SAMSCA [Suspect]
     Indication: CARDIAC FAILURE
     Route: 065

REACTIONS (1)
  - Renal impairment [Unknown]
